FAERS Safety Report 20456661 (Version 1)
Quarter: 2022Q1

REPORT INFORMATION
  Report Type: Spontaneous
  Country: ES (occurrence: ES)
  Receive Date: 20220210
  Receipt Date: 20220210
  Transmission Date: 20220424
  Serious: Yes (Hospitalization)
  Sender: FDA-Public Use
  Company Number: ES-MYLANLABS-2022M1011444

PATIENT
  Age: 51 Year
  Sex: Female

DRUGS (18)
  1. ALLOPURINOL [Suspect]
     Active Substance: ALLOPURINOL
     Indication: Hypomania
     Dosage: 300 MILLIGRAM
     Route: 065
     Dates: start: 20200904, end: 20201016
  2. ALLOPURINOL [Suspect]
     Active Substance: ALLOPURINOL
     Indication: Psychiatric disorder prophylaxis
  3. THALIDOMIDE [Suspect]
     Active Substance: THALIDOMIDE
     Indication: Plasma cell myeloma
     Dosage: 50 MILLIGRAM, CYCLE
     Route: 065
     Dates: start: 20200904, end: 20201026
  4. THALIDOMIDE [Suspect]
     Active Substance: THALIDOMIDE
     Dosage: 25 MILLIGRAM, CYCLE
     Route: 065
  5. THALIDOMIDE [Suspect]
     Active Substance: THALIDOMIDE
     Dosage: 100 MILLIGRAM, CYCLE
     Route: 065
     Dates: end: 2021
  6. THALIDOMIDE [Suspect]
     Active Substance: THALIDOMIDE
     Dosage: 150 MILLIGRAM, CYCLE
     Route: 065
     Dates: start: 2021, end: 2021
  7. DEXAMETHASONE [Concomitant]
     Active Substance: DEXAMETHASONE
     Indication: Plasma cell myeloma
     Dosage: UNK UNK, CYCLE
     Route: 065
  8. BORTEZOMIB [Concomitant]
     Active Substance: BORTEZOMIB
     Indication: Plasma cell myeloma
     Dosage: CYCLE, ADMINISTERED ON 07 SEPTEMBER 2020, 11 SEPTEMBER 2020, 14 SEPTEMBER 2020?
     Route: 065
  9. ACYCLOVIR [Concomitant]
     Active Substance: ACYCLOVIR
     Indication: Hypomania
     Dosage: 800 MILLIGRAM
     Route: 065
     Dates: start: 20200904, end: 20201030
  10. ACYCLOVIR [Concomitant]
     Active Substance: ACYCLOVIR
     Indication: Psychiatric disorder prophylaxis
  11. BEMIPARIN SODIUM [Concomitant]
     Active Substance: BEMIPARIN SODIUM
     Indication: Hypomania
     Dosage: UNK
     Route: 065
     Dates: start: 202010, end: 20201030
  12. BEMIPARIN SODIUM [Concomitant]
     Active Substance: BEMIPARIN SODIUM
     Indication: Psychiatric disorder prophylaxis
  13. ZOLEDRONIC ACID [Concomitant]
     Active Substance: ZOLEDRONIC ACID
     Indication: Hypomania
     Dosage: UNK
     Route: 065
  14. ZOLEDRONIC ACID [Concomitant]
     Active Substance: ZOLEDRONIC ACID
     Indication: Psychiatric disorder prophylaxis
  15. FAMOTIDINE [Concomitant]
     Active Substance: FAMOTIDINE
     Indication: Hypomania
     Dosage: UNK
     Route: 065
     Dates: start: 20200904, end: 20201030
  16. FAMOTIDINE [Concomitant]
     Active Substance: FAMOTIDINE
     Indication: Psychiatric disorder prophylaxis
  17. OLANZAPINE [Concomitant]
     Active Substance: OLANZAPINE
     Indication: Hypomania
     Dosage: UNK
     Route: 065
     Dates: start: 202010, end: 20201030
  18. OLANZAPINE [Concomitant]
     Active Substance: OLANZAPINE
     Indication: Psychiatric disorder prophylaxis

REACTIONS (2)
  - Drug reaction with eosinophilia and systemic symptoms [Recovering/Resolving]
  - Off label use [Unknown]

NARRATIVE: CASE EVENT DATE: 20201022
